FAERS Safety Report 23874062 (Version 2)
Quarter: 2024Q3

REPORT INFORMATION
  Report Type: Report from Study
  Country: JP (occurrence: JP)
  Receive Date: 20240520
  Receipt Date: 20240925
  Transmission Date: 20241016
  Serious: Yes (Death)
  Sender: SHIONOGI
  Company Number: JP-shionogi-202403676_FTR_P_1

PATIENT
  Age: 7 Decade
  Sex: Male
  Weight: 78.4 kg

DRUGS (16)
  1. CEFIDEROCOL [Suspect]
     Active Substance: CEFIDEROCOL
     Indication: Pseudomonas infection
     Route: 041
     Dates: start: 20240130, end: 20240217
  2. GENTAMICIN SULFATE [Concomitant]
     Active Substance: GENTAMICIN SULFATE
     Indication: Pseudomonas infection
     Route: 065
     Dates: end: 20240209
  3. VANCOMYCIN HYDROCHLORIDE [Concomitant]
     Active Substance: VANCOMYCIN HYDROCHLORIDE
     Indication: Pseudomonas infection
     Route: 065
     Dates: end: 20240207
  4. CALCIUM GLUCONATE\DEXTROSE\MAGNESIUM SULFATE\POTASSIUM ACETATE\POTASSI [Concomitant]
     Active Substance: CALCIUM GLUCONATE\DEXTROSE\MAGNESIUM SULFATE\POTASSIUM ACETATE\POTASSIUM PHOSPHATE, DIBASIC\ZINC SUL
     Indication: Product used for unknown indication
     Route: 065
     Dates: end: 20240217
  5. AMINO ACIDS, SOURCE UNSPECIFIED [Concomitant]
     Active Substance: AMINO ACIDS, SOURCE UNSPECIFIED
     Indication: Product used for unknown indication
     Route: 065
     Dates: end: 20240217
  6. HUMULIN R [Concomitant]
     Active Substance: INSULIN HUMAN
     Indication: Product used for unknown indication
     Route: 065
     Dates: end: 20240217
  7. PANTOL [PANTHENOL] [Concomitant]
     Indication: Product used for unknown indication
     Route: 065
     Dates: end: 20240217
  8. FENTANYL [Concomitant]
     Active Substance: FENTANYL\FENTANYL CITRATE
     Indication: Product used for unknown indication
     Route: 065
     Dates: end: 20240217
  9. MIDAZOLAM [Concomitant]
     Active Substance: MIDAZOLAM
     Indication: Product used for unknown indication
     Route: 065
     Dates: end: 20240217
  10. MIYA-BM [Concomitant]
     Active Substance: CLOSTRIDIUM BUTYRICUM SPORES STRAIN M-55
     Indication: Product used for unknown indication
     Route: 051
     Dates: end: 20240217
  11. LANSOPRAZOLE [Concomitant]
     Active Substance: LANSOPRAZOLE
     Indication: Product used for unknown indication
     Route: 051
     Dates: end: 20240217
  12. ALLOID G [Concomitant]
     Active Substance: SODIUM ALGINATE
     Indication: Product used for unknown indication
     Route: 051
     Dates: end: 20240217
  13. MINOCYCLINE HYDROCHLORIDE [Concomitant]
     Active Substance: MINOCYCLINE HYDROCHLORIDE
     Indication: Pseudomonas infection
     Route: 065
     Dates: start: 20240210, end: 20240217
  14. KCL CORRECTIVE [Concomitant]
     Indication: Product used for unknown indication
     Route: 065
     Dates: start: 20240206, end: 20240217
  15. HALOPERIDOL [Concomitant]
     Active Substance: HALOPERIDOL
     Indication: Product used for unknown indication
     Route: 065
     Dates: start: 20240217, end: 20240217
  16. ATARAX-P [HYDROXYZINE HYDROCHLORIDE] [Concomitant]
     Indication: Product used for unknown indication
     Route: 065
     Dates: start: 20240217, end: 20240217

REACTIONS (2)
  - Pseudomonas infection [Fatal]
  - Cardio-respiratory arrest [Fatal]

NARRATIVE: CASE EVENT DATE: 20240217
